FAERS Safety Report 13349050 (Version 1)
Quarter: 2017Q1

REPORT INFORMATION
  Report Type: Spontaneous
  Country: IR (occurrence: IR)
  Receive Date: 20170320
  Receipt Date: 20170320
  Transmission Date: 20170428
  Serious: Yes (Hospitalization)
  Sender: FDA-Public Use
  Company Number: IR-CIPLA LTD.-2017IR04339

PATIENT

DRUGS (5)
  1. BOSENTAN. [Suspect]
     Active Substance: BOSENTAN
     Indication: PULMONARY ARTERIAL HYPERTENSION
     Dosage: UNK
     Route: 065
  2. ILOMEDIN [Suspect]
     Active Substance: ILOPROST
     Indication: PULMONARY ARTERIAL HYPERTENSION
     Dosage: UNK, FOR ONE WEEK POSTPARTUM
  3. BOSENTAN. [Suspect]
     Active Substance: BOSENTAN
     Dosage: UNK, UPON DISCHARGE
     Route: 065
  4. ILOMEDIN [Suspect]
     Active Substance: ILOPROST
     Dosage: UNK, RESTARTED
  5. WARFARIN [Suspect]
     Active Substance: WARFARIN
     Dosage: UNK
     Route: 065

REACTIONS (1)
  - Condition aggravated [Unknown]
